FAERS Safety Report 6874566-6 (Version None)
Quarter: 2010Q2

REPORT INFORMATION
  Report Type: 
  Country: None (occurrence: None)
  Receive Date: 20100609
  Receipt Date: 20090701
  Transmission Date: 20101027
  Serious: No
  Sender: FDA-Public Use
  Company Number: 2009-00934

PATIENT
  Age: 65 Year
  Sex: Male
  Weight: 83.4619 kg

DRUGS (4)
  1. ZICAM COLD REMEDY GEL SWABS [Suspect]
     Indication: PROPHYLAXIS
     Dosage: SPORODIC, YRS ON + OFF
     Dates: start: 20050101, end: 20090601
  2. ZICAM COLD REMEDY GEL SWABS [Suspect]
     Indication: PROPHYLAXIS
     Dosage: SPORADIC, YRS ON + OFF
     Dates: start: 20050101, end: 20090601
  3. ZICAM COLD REMEDY NASAL GEL [Suspect]
     Dosage: SPORADIC, YRS ON + OFF
     Dates: start: 20050101, end: 20090601
  4. TRICOR [Concomitant]

REACTIONS (1)
  - ANOSMIA [None]
